FAERS Safety Report 9931514 (Version 2)
Quarter: 2014Q1

REPORT INFORMATION
  Report Type: Spontaneous
  Country: JP (occurrence: JP)
  Receive Date: 20140228
  Receipt Date: 20140228
  Transmission Date: 20141002
  Serious: Yes (Other)
  Sender: FDA-Public Use
  Company Number: JP-ASTRAZENECA-2014SE03510

PATIENT
  Age: 30915 Day
  Sex: Female
  Weight: 40 kg

DRUGS (10)
  1. MEROPEN [Suspect]
     Indication: PNEUMONIA
     Route: 042
     Dates: start: 20131225, end: 20131229
  2. MEROPEN [Suspect]
     Indication: BRONCHITIS
     Route: 042
     Dates: start: 20131225, end: 20131229
  3. MEROPEN [Suspect]
     Indication: PNEUMONIA
     Route: 042
     Dates: start: 20131230, end: 20140106
  4. MEROPEN [Suspect]
     Indication: BRONCHITIS
     Route: 042
     Dates: start: 20131230, end: 20140106
  5. DIFLUCAN [Concomitant]
     Route: 065
  6. NEXIUM [Concomitant]
     Route: 048
  7. MIYA BM [Concomitant]
     Route: 048
  8. OLMETEC [Concomitant]
     Route: 048
  9. SLOW-K [Concomitant]
     Route: 048
  10. PREDONINE [Concomitant]
     Route: 065

REACTIONS (1)
  - Liver disorder [Recovering/Resolving]
